FAERS Safety Report 8943527 (Version 1)
Quarter: 2012Q4

REPORT INFORMATION
  Report Type: 
  Country: US (occurrence: US)
  Receive Date: 20121204
  Receipt Date: 20121204
  Transmission Date: 20130627
  Serious: No
  Sender: FDA-Public Use
  Company Number: US-ABBOTT-12P-163-0893711-00

PATIENT
  Age: 47 Year
  Sex: Female
  Weight: 56.75 kg

DRUGS (1)
  1. OMNICEF [Suspect]
     Indication: STAPHYLOCOCCAL INFECTION
     Dosage: Twice a day
     Dates: start: 20111129, end: 20111201

REACTIONS (1)
  - Rash generalised [Recovered/Resolved]
